FAERS Safety Report 19026815 (Version 4)
Quarter: 2021Q2

REPORT INFORMATION
  Report Type: Spontaneous
  Country: US (occurrence: US)
  Receive Date: 20210318
  Receipt Date: 20210416
  Transmission Date: 20210717
  Serious: No
  Sender: FDA-Public Use
  Company Number: US-PFIZER INC-2020483901

PATIENT
  Age: 79 Year
  Sex: Female
  Weight: 74.38 kg

DRUGS (1)
  1. XELJANZ XR [Suspect]
     Active Substance: TOFACITINIB CITRATE
     Indication: ARTHRITIS
     Dosage: 11 MG, 1X/DAY

REACTIONS (5)
  - Arthralgia [Unknown]
  - Off label use [Unknown]
  - Sensitivity to weather change [Unknown]
  - Intentional product misuse [Unknown]
  - Bone pain [Unknown]
